FAERS Safety Report 15920302 (Version 8)
Quarter: 2020Q3

REPORT INFORMATION
  Report Type: Spontaneous
  Country: JP (occurrence: JP)
  Receive Date: 20190205
  Receipt Date: 20200731
  Transmission Date: 20201102
  Serious: Yes (Hospitalization, Other)
  Sender: FDA-Public Use
  Company Number: JP-BRISTOL-MYERS SQUIBB COMPANY-BMS-2019-008698

PATIENT
  Age: 54 Year
  Sex: Male

DRUGS (5)
  1. YERVOY [Suspect]
     Active Substance: IPILIMUMAB
     Indication: METASTATIC RENAL CELL CARCINOMA
     Dosage: 63 MILLIGRAM, UNKNOWN
     Route: 041
     Dates: start: 20181003, end: 20190111
  2. E KEPPRA [Concomitant]
     Active Substance: LEVETIRACETAM
     Indication: PRODUCT USED FOR UNKNOWN INDICATION
     Dosage: 1000 MILLIGRAM, UNKNOWN
     Route: 065
  3. OPDIVO [Suspect]
     Active Substance: NIVOLUMAB
     Dosage: 240 MILLIGRAM, UNKNOWN
     Route: 041
     Dates: start: 20190201, end: 20190329
  4. E KEPPRA [Concomitant]
     Active Substance: LEVETIRACETAM
     Dosage: 1500 MILLIGRAM, QD
     Route: 065
     Dates: start: 20190722
  5. OPDIVO [Suspect]
     Active Substance: NIVOLUMAB
     Indication: METASTATIC RENAL CELL CARCINOMA
     Dosage: 240 MILLIGRAM, UNKNOWN
     Route: 041
     Dates: start: 20181003, end: 20190111

REACTIONS (8)
  - Muscular weakness [Recovered/Resolved]
  - Hypophysitis [Unknown]
  - Interstitial lung disease [Recovered/Resolved]
  - Hypothalamo-pituitary disorder [Unknown]
  - Lung disorder [Unknown]
  - Dysstasia [Recovered/Resolved]
  - Pyrexia [Recovered/Resolved]
  - Secondary adrenocortical insufficiency [Recovered/Resolved]

NARRATIVE: CASE EVENT DATE: 20181127
